FAERS Safety Report 8996106 (Version 2)
Quarter: 2013Q3

REPORT INFORMATION
  Report Type: Spontaneous
  Country: US (occurrence: US)
  Receive Date: 20130103
  Receipt Date: 20130725
  Transmission Date: 20140515
  Serious: No
  Sender: FDA-Public Use
  Company Number: US-ABBOTT-12P-163-0930250-00

PATIENT
  Age: 73 Year
  Sex: Female
  Weight: 64.47 kg

DRUGS (2)
  1. SYNTHROID 50 MCG [Suspect]
     Indication: HYPOTHYROIDISM
     Dates: start: 1985
  2. SYNTHROID 50 MCG [Suspect]

REACTIONS (8)
  - Nail ridging [Not Recovered/Not Resolved]
  - Drug effect decreased [Unknown]
  - Alopecia [Not Recovered/Not Resolved]
  - Swelling face [Not Recovered/Not Resolved]
  - Breast tenderness [Not Recovered/Not Resolved]
  - Restlessness [Not Recovered/Not Resolved]
  - Wheezing [Not Recovered/Not Resolved]
  - Hypometabolism [Unknown]
